FAERS Safety Report 9257848 (Version 1)
Quarter: 2013Q2

REPORT INFORMATION
  Report Type: Spontaneous
  Country: US (occurrence: US)
  Receive Date: 20130426
  Receipt Date: 20130507
  Transmission Date: 20140414
  Serious: Yes (Other)
  Sender: FDA-Public Use
  Company Number: US-GLENMARK GENERICS INC.-2013GMK005538

PATIENT
  Sex: Female

DRUGS (4)
  1. MUPIROCIN CREAM USP, 2% [Suspect]
     Indication: CELLULITIS
     Dosage: UNK, OD
     Route: 061
  2. MUPIROCIN CREAM USP, 2% [Suspect]
     Indication: BLISTER
  3. PREDNISONE [Concomitant]
     Indication: INFECTION
     Dosage: 30 MG, OD
     Route: 048
  4. PREDNISONE [Concomitant]
     Dosage: 15 MG, OD
     Route: 048

REACTIONS (1)
  - Blood glucose increased [Recovering/Resolving]
